FAERS Safety Report 8343734-9 (Version None)
Quarter: 2012Q2

REPORT INFORMATION
  Report Type: 
  Country: None (occurrence: None)
  Receive Date: 20120508
  Receipt Date: 20120508
  Transmission Date: 20120825
  Serious: Yes (Other)
  Sender: FDA-Public Use
  Company Number: None

PATIENT
  Sex: Female
  Weight: 89 kg

DRUGS (1)
  1. DOBUTAMINE HCL [Suspect]

REACTIONS (5)
  - SPEECH DISORDER [None]
  - OEDEMA PERIPHERAL [None]
  - TONGUE DISORDER [None]
  - REACTION TO PRESERVATIVES [None]
  - LIP SWELLING [None]
